FAERS Safety Report 8486827-8 (Version None)
Quarter: 2012Q3

REPORT INFORMATION
  Report Type: 
  Country: None (occurrence: None)
  Receive Date: 20120704
  Receipt Date: 20120622
  Transmission Date: 20120928
  Serious: Yes (Other)
  Sender: FDA-Public Use
  Company Number: CA-BRISTOL-MYERS SQUIBB COMPANY-16714578

PATIENT
  Age: 58 Year
  Sex: Female

DRUGS (8)
  1. ORENCIA [Suspect]
     Indication: RHEUMATOID ARTHRITIS
     Dosage: INF:21,LAST INF ON 22JUN12
     Route: 042
     Dates: start: 20091119
  2. FOLIC ACID [Concomitant]
  3. PANTOPRAZOLE SODIUM [Concomitant]
  4. METHOTREXATE SODIUM [Concomitant]
     Dosage: INJECTION
  5. VOLTAREN [Concomitant]
  6. ESTROGEL [Concomitant]
  7. PROGESTERONE [Concomitant]
  8. ATACAND [Concomitant]

REACTIONS (1)
  - EYE INFLAMMATION [None]
